FAERS Safety Report 17439554 (Version 6)
Quarter: 2020Q4

REPORT INFORMATION
  Report Type: Spontaneous
  Country: BR (occurrence: BR)
  Receive Date: 20200220
  Receipt Date: 20201203
  Transmission Date: 20210113
  Serious: Yes (Other)
  Sender: FDA-Public Use
  Company Number: BR-CELLTRION INC.-2020BR017662

PATIENT

DRUGS (5)
  1. REMSIMA [Suspect]
     Active Substance: INFLIXIMAB
     Indication: PSORIATIC ARTHROPATHY
     Dosage: 3 BOTTLES (100 MG EACH ONE) EVERY 2 MONTHS
     Route: 042
     Dates: start: 2019
  2. REMSIMA [Suspect]
     Active Substance: INFLIXIMAB
     Dosage: 3 BOTTLES (100 MG EACH ONE) EVERY 2 MONTHS (10 MG/ML X 10 ML) EVERY 2 MONTHS
     Route: 042
     Dates: start: 2019
  3. AZATHIOPRINE. [Concomitant]
     Active Substance: AZATHIOPRINE
  4. METHOTREXATE. [Concomitant]
     Active Substance: METHOTREXATE
     Dosage: 2 TABLETS AT MONDAYS, TUESDAYS, WEDNESDAYS AND THURSDAYS, AND 1 TABLET AT FRIDAYS
  5. METHOTREXATE. [Concomitant]
     Active Substance: METHOTREXATE
     Dosage: 2 TABLETS AT MONDAYS, WEDNESDAYS AND 1 TABLET AT FRIDAYS

REACTIONS (9)
  - Vitritis [Not Recovered/Not Resolved]
  - Psoriasis [Unknown]
  - Decreased immune responsiveness [Unknown]
  - Emotional disorder [Unknown]
  - Underdose [Unknown]
  - Stress [Not Recovered/Not Resolved]
  - COVID-19 [Unknown]
  - Product use issue [Unknown]
  - Arthropathy [Unknown]

NARRATIVE: CASE EVENT DATE: 20191129
